FAERS Safety Report 7506127-X (Version None)
Quarter: 2011Q2

REPORT INFORMATION
  Report Type: 
  Country: None (occurrence: None)
  Receive Date: 20110520
  Receipt Date: 20110516
  Transmission Date: 20111010
  Serious: Yes (Death, Hospitalization)
  Sender: FDA-Public Use
  Company Number: 2011SP019476

PATIENT
  Age: 55 Year
  Sex: Male
  Weight: 58.96 kg

DRUGS (32)
  1. VERSED [Concomitant]
  2. ATROPINE SULFATE [Concomitant]
  3. GLUCOSE [Concomitant]
  4. PRILOSEC [Concomitant]
  5. COMBIVENT [Concomitant]
  6. HEPARIN SODIUM [Concomitant]
  7. PROTONIX [Concomitant]
  8. XANAX [Concomitant]
  9. ULTRAM [Concomitant]
  10. REBETOL [Suspect]
     Indication: HEPATITIS C
     Dosage: 1000 MG, QD; PO
     Route: 048
     Dates: start: 20110110, end: 20110404
  11. HUMULIN R/NOVOLIN R [Concomitant]
  12. ALDACTONE [Concomitant]
  13. ALBUTEROL SULFATE AUTOHALER [Concomitant]
  14. CATAPRES-TTS-2 [Concomitant]
  15. DIFLUCAN [Concomitant]
  16. CORDARONE [Concomitant]
  17. GLUCAGON [Concomitant]
  18. THEOPHYLLINE [Concomitant]
  19. DORIBAX [Concomitant]
  20. FENTANYL  /NS [Concomitant]
  21. SOLU-MEDROL [Concomitant]
  22. SODIUM CHLORIDE [Concomitant]
  23. INTRON A [Suspect]
     Indication: HEPATITIS C
     Dates: start: 20110110, end: 20110314
  24. NORVASC [Concomitant]
  25. REGLAN [Concomitant]
  26. COMBIVENT  DEXTROSE 50% IN WATER [Concomitant]
  27. TUSSIONEX [Concomitant]
  28. NITROGLYCERIN [Concomitant]
  29. HEPARIN LOCK-FLUSH [Concomitant]
  30. LANTUS [Concomitant]
  31. TYLENOL-500 [Concomitant]
  32. SODIUM CHLORIDE [Concomitant]

REACTIONS (15)
  - NAUSEA [None]
  - CHILLS [None]
  - INTERSTITIAL LUNG DISEASE [None]
  - BALANCE DISORDER [None]
  - PNEUMONIA [None]
  - CONSTIPATION [None]
  - RESPIRATORY DISTRESS [None]
  - BLOOD GLUCOSE INCREASED [None]
  - DECREASED APPETITE [None]
  - DEHYDRATION [None]
  - DIZZINESS [None]
  - PLATELET COUNT DECREASED [None]
  - VOMITING [None]
  - PULMONARY OEDEMA [None]
  - INTERNATIONAL NORMALISED RATIO DECREASED [None]
